FAERS Safety Report 9482218 (Version 1)
Quarter: 2013Q3

REPORT INFORMATION
  Report Type: Spontaneous
  Country: BR (occurrence: BR)
  Receive Date: 20130828
  Receipt Date: 20130828
  Transmission Date: 20140515
  Serious: Yes (Other)
  Sender: FDA-Public Use
  Company Number: BR-SANOFI-AVENTIS-2013SA084889

PATIENT
  Age: 73 Year
  Sex: Male
  Weight: 105 kg

DRUGS (6)
  1. LANTUS [Suspect]
     Indication: TYPE 1 DIABETES MELLITUS
     Route: 058
     Dates: start: 2009
  2. CORTISONE [Suspect]
     Indication: MYASTHENIA GRAVIS
     Dosage: STRENGTH: 40 MG
     Route: 048
  3. CLIKSTAR [Concomitant]
     Indication: DEVICE THERAPY
     Dates: start: 2009
  4. AMLODIPINE [Concomitant]
     Indication: HYPERTENSION
     Route: 048
  5. MESTINON [Concomitant]
     Indication: MYASTHENIA GRAVIS
     Dosage: STRENGTH: 60 MG
     Route: 048
  6. HUMALOG [Concomitant]
     Indication: DIABETES MELLITUS
     Dosage: 10 IU BEFORE LUNCHAND 10 IU BEFORE DINNER

REACTIONS (11)
  - Myasthenia gravis [Not Recovered/Not Resolved]
  - Asthenia [Not Recovered/Not Resolved]
  - Asthenia [Not Recovered/Not Resolved]
  - Gait disturbance [Not Recovered/Not Resolved]
  - Grip strength decreased [Not Recovered/Not Resolved]
  - Dementia Alzheimer^s type [Not Recovered/Not Resolved]
  - Pain [Not Recovered/Not Resolved]
  - Hypoglycaemia [Not Recovered/Not Resolved]
  - Feeling abnormal [Recovering/Resolving]
  - Chills [Recovering/Resolving]
  - Swelling [Not Recovered/Not Resolved]
